FAERS Safety Report 18570421 (Version 6)
Quarter: 2024Q1

REPORT INFORMATION
  Report Type: Spontaneous
  Country: US (occurrence: US)
  Receive Date: 20201202
  Receipt Date: 20240109
  Transmission Date: 20240410
  Serious: No
  Sender: FDA-Public Use
  Company Number: US-PFIZER INC-2018251040

PATIENT
  Age: 61 Year
  Sex: Male

DRUGS (2)
  1. XELJANZ XR [Suspect]
     Active Substance: TOFACITINIB CITRATE
     Dosage: 11 MG, DAILY
     Route: 048
  2. GABAPENTIN [Concomitant]
     Active Substance: GABAPENTIN
     Dosage: UNK

REACTIONS (8)
  - Illness [Unknown]
  - Hypersensitivity [Unknown]
  - Sinus disorder [Unknown]
  - Pain in extremity [Unknown]
  - Joint swelling [Unknown]
  - Condition aggravated [Unknown]
  - Muscular weakness [Unknown]
  - Joint stiffness [Unknown]
